FAERS Safety Report 5574309-2 (Version None)
Quarter: 2007Q4

REPORT INFORMATION
  Report Type: 
  Country: None (occurrence: None)
  Receive Date: 20071221
  Receipt Date: 20071206
  Transmission Date: 20080405
  Serious: Yes (Hospitalization)
  Sender: FDA-Public Use
  Company Number: US021962

PATIENT
  Age: 46 Year
  Sex: Female

DRUGS (19)
  1. ACTIQ [Suspect]
     Indication: BACK PAIN
     Dosage: UP TO 3800 UG DAILY QD ORAL
     Route: 048
     Dates: start: 20030101, end: 20040224
  2. ACTIQ [Suspect]
     Indication: NECK PAIN
     Dosage: UP TO 3800 UG DAILY QD ORAL
     Route: 048
     Dates: start: 20030101, end: 20040224
  3. ACTIQ [Suspect]
     Indication: PAIN IN EXTREMITY
     Dosage: UP TO 3800 UG DAILY QD ORAL
     Route: 048
     Dates: start: 20030101, end: 20040224
  4. OXYCONTIN [Suspect]
     Indication: BACK PAIN
     Dosage: UP TO 40 MG Q8HRS
     Dates: start: 20030101, end: 20040224
  5. OXYCONTIN [Suspect]
     Indication: NECK PAIN
     Dosage: UP TO 40 MG Q8HRS
     Dates: start: 20030101, end: 20040224
  6. OXYCONTIN [Suspect]
     Indication: PAIN IN EXTREMITY
     Dosage: UP TO 40 MG Q8HRS
     Dates: start: 20030101, end: 20040224
  7. LEXAPRO [Concomitant]
  8. CLONIDINE [Concomitant]
  9. THIAMINE [Concomitant]
  10. BENTYL [Concomitant]
  11. QUININE [Concomitant]
  12. PHENERGAN /00033001/ [Concomitant]
  13. TRAZODONE HCL [Concomitant]
  14. NEURONTIN [Concomitant]
  15. EFFEXOR [Concomitant]
  16. VISTARIL /00058402/ [Concomitant]
  17. ZYRTEC [Concomitant]
  18. GABITRIL [Concomitant]
  19. IDOXIFENE [Concomitant]

REACTIONS (4)
  - DRUG DETOXIFICATION [None]
  - IMPAIRED WORK ABILITY [None]
  - MAJOR DEPRESSION [None]
  - SUICIDAL IDEATION [None]
